FAERS Safety Report 5690447-8 (Version None)
Quarter: 2008Q1

REPORT INFORMATION
  Report Type: 
  Country: None (occurrence: None)
  Receive Date: 20080331
  Receipt Date: 20080331
  Transmission Date: 20080703
  Serious: No
  Sender: FDA-Public Use
  Company Number: None

PATIENT
  Age: 44 Year
  Sex: Male

DRUGS (1)
  1. TIZANIDINE HCL [Suspect]
     Indication: MUSCLE SPASTICITY
     Dosage: 2MG  BID  PO
     Route: 048
     Dates: start: 20080314, end: 20080318

REACTIONS (1)
  - RASH [None]
